FAERS Safety Report 20862022 (Version 2)
Quarter: 2022Q2

REPORT INFORMATION
  Report Type: Spontaneous
  Country: US (occurrence: US)
  Receive Date: 20220523
  Receipt Date: 20220525
  Transmission Date: 20220721
  Serious: Yes (Other)
  Sender: FDA-Public Use
  Company Number: US-PFIZER INC-202200720806

PATIENT
  Sex: Female
  Weight: 95.25 kg

DRUGS (1)
  1. FLAGYL [Suspect]
     Active Substance: METRONIDAZOLE\METRONIDAZOLE HYDROCHLORIDE
     Indication: Bacterial infection
     Dosage: UNK

REACTIONS (9)
  - Neuropathy peripheral [Unknown]
  - Exfoliation glaucoma [Unknown]
  - Photophobia [Unknown]
  - Vitreous floaters [Unknown]
  - Visual impairment [Unknown]
  - Intraocular pressure increased [Unknown]
  - Body height decreased [Unknown]
  - Overweight [Unknown]
  - Product administration error [Unknown]
